FAERS Safety Report 4476890-3 (Version None)
Quarter: 2004Q4

REPORT INFORMATION
  Report Type: 
  Country: None (occurrence: None)
  Receive Date: 20041013
  Receipt Date: 20041001
  Transmission Date: 20050328
  Serious: Yes (Hospitalization, Other)
  Sender: FDA-Public Use
  Company Number: HQWYE559025AUG04

PATIENT
  Age: 51 Year
  Sex: Male
  Weight: 95.34 kg

DRUGS (9)
  1. EFFEXOR XR [Suspect]
     Indication: ANXIETY
     Dosage: SEE IMAGE
     Route: 048
     Dates: start: 20021201, end: 20040819
  2. EFFEXOR XR [Suspect]
     Indication: DEPRESSION
     Dosage: SEE IMAGE
     Route: 048
     Dates: start: 20021201, end: 20040819
  3. EFFEXOR XR [Suspect]
     Indication: ANXIETY
     Dosage: SEE IMAGE
     Route: 048
     Dates: start: 20040823
  4. EFFEXOR XR [Suspect]
     Indication: DEPRESSION
     Dosage: SEE IMAGE
     Route: 048
     Dates: start: 20040823
  5. ATENOLOL [Suspect]
     Dates: start: 20040801, end: 20040819
  6. TEGRETOL [Suspect]
     Indication: CONVULSION
     Dates: end: 20040819
  7. ANTIBIOTIC (ANTIBIOTIC) [Suspect]
     Indication: INFECTION
     Dates: start: 20040801, end: 20040819
  8. AVAPRO [Concomitant]
  9. KLONOPIN [Concomitant]

REACTIONS (8)
  - AGITATION [None]
  - CONFUSIONAL STATE [None]
  - DRUG WITHDRAWAL SYNDROME [None]
  - DYSARTHRIA [None]
  - HALLUCINATION [None]
  - POSTOPERATIVE INFECTION [None]
  - ROAD TRAFFIC ACCIDENT [None]
  - SPLENECTOMY [None]
